FAERS Safety Report 15029838 (Version 1)
Quarter: 2018Q2

REPORT INFORMATION
  Report Type: Report from Study
  Country: GB (occurrence: GB)
  Receive Date: 20180619
  Receipt Date: 20180619
  Transmission Date: 20180711
  Serious: Yes (Other)
  Sender: FDA-Public Use
  Company Number: GB-JNJFOC-20180620486

PATIENT
  Sex: Male
  Weight: 25.4 kg

DRUGS (1)
  1. STELARA [Suspect]
     Active Substance: USTEKINUMAB
     Indication: PSORIASIS
     Dosage: ON WEEK 4 AS DIRECTED
     Route: 058
     Dates: start: 2013

REACTIONS (1)
  - Wound infection [Not Recovered/Not Resolved]
